FAERS Safety Report 8808734 (Version 2)
Quarter: 2012Q4

REPORT INFORMATION
  Report Type: Spontaneous
  Country: US (occurrence: None)
  Receive Date: 20120921
  Receipt Date: 20121009
  Transmission Date: 20130627
  Serious: Yes (Hospitalization)
  Sender: FDA-Public Use
  Company Number: 139038

PATIENT
  Age: 68 Year
  Sex: Female
  Weight: 62 kg

DRUGS (1)
  1. LEUCOVORIN [Suspect]
     Indication: METASTATIC COLORECTAL CANCER
     Dosage: 400mg/m2 IV
     Route: 042
     Dates: start: 20120501, end: 20120712

REACTIONS (6)
  - Pleural effusion [None]
  - Pulmonary embolism [None]
  - Platelet count decreased [None]
  - Peripheral sensory neuropathy [None]
  - Pulmonary thrombosis [None]
  - Asthenia [None]
